FAERS Safety Report 9240396 (Version 1)
Quarter: 2013Q1

REPORT INFORMATION
  Report Type: Spontaneous
  Country: US (occurrence: None)
  Receive Date: 20121107
  Receipt Date: 20121107
  Transmission Date: 20140127
  Serious: Yes (Hospitalization)
  Sender: FDA-Public Use
  Company Number: 2012HGS-003869

PATIENT
  Age: 49 Year
  Sex: Female
  Weight: 73.03 kg

DRUGS (12)
  1. BENLYSTA [Suspect]
     Indication: SYSTEMIC LUPUS ERYTHEMATOSUS
     Dosage: 1 IN 28 D, INTRAVENOUS DRIP
     Route: 041
     Dates: start: 20111001
  2. PREDNISONE (PREDNISONE) (PREDNISONE) [Concomitant]
  3. PLAQUENIL (HYDROXYCHLOROQUINE SULFATE) (HYDROXYCHLOROQUINE SULFATE) [Concomitant]
  4. METFORMIN (METFORMIN) (METFORMIN) [Concomitant]
  5. POTASSIUM (POTASSIUM) (POTASSIUM) [Concomitant]
  6. FERROUS SULFATE (FERROUS SULFATE) (FERROUS SULFATE) [Concomitant]
  7. HYZAAR (HYZAAR) (HYDROCHLOROTHIAZIDE, LOSARTAN POTASSIUM) [Concomitant]
  8. CITALOPRAMIDE (CITALOPRAM) (CITALOPRAM) [Concomitant]
  9. OXYCONTIN (OXYCODONE HYDROCHLORIDE) (OXYCODONE HYDROCHLORIDE) [Concomitant]
  10. OXYCODONE (OXYCODONE) (OXYCODONE) [Concomitant]
  11. MULTIVITAMIN (MULTIVITAMIN /00831701/) (VITAMINS NOS) [Concomitant]
  12. STOOL SOFTENER (DOCUSATE SODIUM) (DOCUSATE SODIUM) [Concomitant]

REACTIONS (5)
  - Pneumonia [None]
  - Pain in extremity [None]
  - Pain in extremity [None]
  - Local swelling [None]
  - Local swelling [None]
